FAERS Safety Report 4339417-2 (Version None)
Quarter: 2004Q2

REPORT INFORMATION
  Report Type: 
  Country: None (occurrence: None)
  Receive Date: 20040412
  Receipt Date: 20040401
  Transmission Date: 20050107
  Serious: Yes (Other)
  Sender: FDA-Public Use
  Company Number: GB-JNJFOC-20040400127

PATIENT
  Age: 62 Year
  Sex: Male
  Weight: 87.8 kg

DRUGS (9)
  1. REMICADE [Suspect]
     Indication: VASCULITIS NECROTISING
     Dosage: 5 MG/KG, INTRAVENOUS
     Route: 042
     Dates: start: 20031127, end: 20040122
  2. PREDNISOLONE [Concomitant]
  3. OMEPRAZOLE [Concomitant]
  4. ASPIRIN [Concomitant]
  5. CHEWABLE CALCIUM (CALCIUM) [Concomitant]
  6. CO-AMILOZIDE (MODURETIC) [Concomitant]
  7. METHOTREXATE [Concomitant]
  8. FOLIC ACID [Concomitant]
  9. ARANESP [Concomitant]

REACTIONS (5)
  - ARTHRALGIA [None]
  - CONDITION AGGRAVATED [None]
  - HAEMOGLOBIN DECREASED [None]
  - NODULAR VASCULITIS [None]
  - VASCULITIS [None]
